FAERS Safety Report 26205134 (Version 1)
Quarter: 2025Q4

REPORT INFORMATION
  Report Type: Spontaneous
  Country: EU (occurrence: EU)
  Receive Date: 20251228
  Receipt Date: 20251228
  Transmission Date: 20260118
  Serious: Yes (Other)
  Sender: JOHNSON AND JOHNSON
  Company Number: EU-JNJFOC-20251228919

PATIENT
  Sex: Female
  Weight: 90 kg

DRUGS (4)
  1. RYBREVANT [Suspect]
     Active Substance: AMIVANTAMAB-VMJW
     Indication: Non-small cell lung cancer metastatic
     Dosage: RESUMPTION DATE-28-APR-2025
  2. RYBREVANT [Suspect]
     Active Substance: AMIVANTAMAB-VMJW
     Dosage: DATE OF LAST INFUSION-12-AUG-2025, INFUSION 7
  3. CARBOPLATIN [Suspect]
     Active Substance: CARBOPLATIN
     Indication: Non-small cell lung cancer metastatic
     Dosage: DATE OF INTERRUPTION- 04-APR-2025
  4. PEMETREXED [Suspect]
     Active Substance: PEMETREXED
     Indication: Non-small cell lung cancer metastatic
     Dosage: DATE OF INTERRUPTION- 04-APR-2025

REACTIONS (3)
  - Non-small cell lung cancer [Unknown]
  - Pancytopenia [Unknown]
  - Off label use [Unknown]
